FAERS Safety Report 7406744-1 (Version None)
Quarter: 2011Q2

REPORT INFORMATION
  Report Type: 
  Country: None (occurrence: None)
  Receive Date: 20110406
  Receipt Date: 20110406
  Transmission Date: 20111010
  Serious: Yes (Hospitalization, Other)
  Sender: FDA-Public Use
  Company Number: None

PATIENT

DRUGS (1)
  1. SEROQUEL [Suspect]
     Indication: BIPOLAR DISORDER
     Dosage: 400 MG TABLETS
     Dates: start: 20000101, end: 20110301

REACTIONS (8)
  - ROAD TRAFFIC ACCIDENT [None]
  - PAIN [None]
  - EYE PAIN [None]
  - ELECTROCARDIOGRAM REPOLARISATION ABNORMALITY [None]
  - CHEST PAIN [None]
  - KERATOCONUS [None]
  - VISION BLURRED [None]
  - HEADACHE [None]
